FAERS Safety Report 14700078 (Version 1)
Quarter: 2018Q1

REPORT INFORMATION
  Report Type: Spontaneous
  Country: CA (occurrence: CA)
  Receive Date: 20180330
  Receipt Date: 20180330
  Transmission Date: 20180509
  Serious: Yes (Other)
  Sender: FDA-Public Use
  Company Number: CA-ESPERO PHARMACEUTICALS-ESP201803-000014

PATIENT
  Age: 68 Year
  Sex: Male
  Weight: 79 kg

DRUGS (18)
  1. NITROGLYCERIN. [Suspect]
     Active Substance: NITROGLYCERIN
     Indication: PRODUCT USE IN UNAPPROVED INDICATION
  2. ESBRIET [Suspect]
     Active Substance: PIRFENIDONE
     Route: 048
  3. ALVESCO [Concomitant]
     Active Substance: CICLESONIDE
  4. HYDROXYCHLOROQUINE [Concomitant]
     Active Substance: HYDROXYCHLOROQUINE
     Indication: POLYMYALGIA RHEUMATICA
  5. RABEPRAZOLE [Concomitant]
     Active Substance: RABEPRAZOLE
  6. ZANTAC [Suspect]
     Active Substance: RANITIDINE HYDROCHLORIDE
     Indication: PRODUCT USE IN UNAPPROVED INDICATION
  7. SERRAPEPTASE [Concomitant]
     Active Substance: SERRAPEPTASE
  8. ESBRIET [Suspect]
     Active Substance: PIRFENIDONE
     Route: 048
  9. ESBRIET [Suspect]
     Active Substance: PIRFENIDONE
     Route: 048
  10. DOCOSAHEXAENOIC ACID/ EICOSAPENTAENOIC ACID [Concomitant]
  11. VITAMIN C [Concomitant]
     Active Substance: ASCORBIC ACID
  12. AIROMIR [Concomitant]
     Active Substance: ALBUTEROL SULFATE
  13. DEXAMETHASONE. [Concomitant]
     Active Substance: DEXAMETHASONE
     Indication: POLYMYALGIA RHEUMATICA
  14. ECHINACEA [Concomitant]
     Active Substance: ECHINACEA, UNSPECIFIED
  15. ESBRIET [Suspect]
     Active Substance: PIRFENIDONE
     Indication: IDIOPATHIC PULMONARY FIBROSIS
     Route: 048
  16. ESBRIET [Suspect]
     Active Substance: PIRFENIDONE
     Route: 048
  17. NIFEDIPINE. [Concomitant]
     Active Substance: NIFEDIPINE
  18. ESBRIET [Suspect]
     Active Substance: PIRFENIDONE
     Route: 048

REACTIONS (12)
  - Drug interaction [Not Recovered/Not Resolved]
  - Drug hypersensitivity [Not Recovered/Not Resolved]
  - Angina pectoris [Not Recovered/Not Resolved]
  - Chest discomfort [Not Recovered/Not Resolved]
  - Nausea [Not Recovered/Not Resolved]
  - Hypoaesthesia [Not Recovered/Not Resolved]
  - Urinary tract infection [Not Recovered/Not Resolved]
  - Gastrooesophageal reflux disease [Not Recovered/Not Resolved]
  - Headache [Not Recovered/Not Resolved]
  - Paraesthesia [Not Recovered/Not Resolved]
  - Malaise [Not Recovered/Not Resolved]
  - Dyspepsia [Not Recovered/Not Resolved]
